FAERS Safety Report 9762044 (Version 1)
Quarter: 2013Q4

REPORT INFORMATION
  Report Type: Spontaneous
  Country: IT (occurrence: None)
  Receive Date: 20131213
  Receipt Date: 20131213
  Transmission Date: 20140711
  Serious: Yes (Other)
  Sender: FDA-Public Use
  Company Number: SYM-2013-13665

PATIENT
  Sex: 0

DRUGS (1)
  1. TRETINOIN [Suspect]
     Indication: ACNE
     Route: 061

REACTIONS (1)
  - Dermatitis [None]
